FAERS Safety Report 21161547 (Version 1)
Quarter: 2022Q3

REPORT INFORMATION
  Report Type: Spontaneous
  Country: CA (occurrence: CA)
  Receive Date: 20220802
  Receipt Date: 20220802
  Transmission Date: 20221027
  Serious: Yes (Other)
  Sender: FDA-Public Use
  Company Number: CA-PFIZER INC-202200962312

PATIENT
  Age: 43 Year
  Sex: Female
  Weight: 127 kg

DRUGS (4)
  1. RUXIENCE [Suspect]
     Active Substance: RITUXIMAB-PVVR
     Indication: Rheumatoid arthritis
     Dosage: 1000 MG DAY 1 AND 15
     Route: 042
     Dates: start: 20220726
  2. ACETAMINOPHEN [Concomitant]
     Active Substance: ACETAMINOPHEN
     Indication: Premedication
     Dosage: 650 MG
     Dates: start: 20220726, end: 20220726
  3. DIPHENHYDRAMINE [Concomitant]
     Active Substance: DIPHENHYDRAMINE
     Indication: Premedication
     Dosage: 50 MG
     Dates: start: 20220726, end: 20220726
  4. METHOTREXATE [Concomitant]
     Active Substance: METHOTREXATE
     Dosage: 30 MG, WEEKLY
     Route: 065

REACTIONS (6)
  - Ear pruritus [Recovering/Resolving]
  - Dry throat [Recovering/Resolving]
  - Throat irritation [Recovering/Resolving]
  - Cough [Recovered/Resolved]
  - Off label use [Unknown]
  - Product use issue [Unknown]

NARRATIVE: CASE EVENT DATE: 20220726
